FAERS Safety Report 7360247-1 (Version None)
Quarter: 2011Q1

REPORT INFORMATION
  Report Type: 
  Country: None (occurrence: None)
  Receive Date: 20110310
  Receipt Date: 20110304
  Transmission Date: 20110831
  Serious: Yes (Other)
  Sender: FDA-Public Use
  Company Number: DSU-2011-01601

PATIENT
  Sex: Male
  Weight: 95.2554 kg

DRUGS (1)
  1. BENICAR HCT [Suspect]
     Indication: HYPERTENSION
     Dosage: 20/12.5MG (QD), PER ORAL
     Route: 048
     Dates: start: 20100101

REACTIONS (1)
  - COELIAC DISEASE [None]
